FAERS Safety Report 4935752-5 (Version None)
Quarter: 2006Q1

REPORT INFORMATION
  Report Type: 
  Country: None (occurrence: None)
  Receive Date: 20060302
  Receipt Date: 20060217
  Transmission Date: 20060701
  Serious: Yes (Congenital Anomaly)
  Sender: FDA-Public Use
  Company Number: 2006US-01680

PATIENT
  Sex: Male

DRUGS (1)
  1. FLUCONAZOLE [Suspect]
     Dosage: 800 MG/DAY, INTRA-UTERINE
     Route: 015

REACTIONS (14)
  - BACTERAEMIA [None]
  - BODY DYSMORPHIC DISORDER [None]
  - CEREBRAL DISORDER [None]
  - CONGENITAL ANOMALY [None]
  - CONVULSION NEONATAL [None]
  - CRANIOSYNOSTOSIS [None]
  - DEVELOPMENTAL DELAY [None]
  - DRUG EXPOSURE DURING PREGNANCY [None]
  - FACIAL DYSMORPHISM [None]
  - GRAND MAL CONVULSION [None]
  - JOINT CONTRACTURE [None]
  - NEONATAL DISORDER [None]
  - PNEUMONIA STREPTOCOCCAL [None]
  - PREMATURE CLOSURE OF CRANIAL SUTURES [None]
